FAERS Safety Report 4666228-0 (Version None)
Quarter: 2005Q2

REPORT INFORMATION
  Report Type: 
  Country: None (occurrence: None)
  Receive Date: 20050519
  Receipt Date: 20050509
  Transmission Date: 20051028
  Serious: Yes (Hospitalization)
  Sender: FDA-Public Use
  Company Number: MY-BRISTOL-MYERS SQUIBB COMPANY-12960860

PATIENT
  Age: 65 Year
  Sex: Male

DRUGS (6)
  1. WARFARIN SODIUM [Interacting]
     Indication: ANTICOAGULANT THERAPY
     Dosage: VARYING DOSES
     Route: 048
     Dates: start: 20010101
  2. PHENYTOIN [Interacting]
     Indication: CONVULSION
     Dosage: 300 MG/D; INTERRUPTED/RESTARTED ON REDUCED DOSE OF 100MG
     Route: 048
  3. GINSENG [Suspect]
  4. METOPROLOL [Concomitant]
     Route: 048
  5. NIFEDIPINE [Concomitant]
     Route: 048
  6. GEMFIBROZIL [Concomitant]
     Route: 048

REACTIONS (7)
  - CONTUSION [None]
  - CONVULSION [None]
  - DRUG INTERACTION [None]
  - DYSPNOEA [None]
  - GINGIVAL BLEEDING [None]
  - INTERNATIONAL NORMALISED RATIO INCREASED [None]
  - OEDEMA PERIPHERAL [None]
